FAERS Safety Report 4950771-0 (Version None)
Quarter: 2006Q1

REPORT INFORMATION
  Report Type: 
  Country: None (occurrence: None)
  Receive Date: 20060321
  Receipt Date: 20060321
  Transmission Date: 20060701
  Serious: Yes (Death)
  Sender: FDA-Public Use
  Company Number: None

PATIENT
  Age: 54 Year
  Sex: Female

DRUGS (3)
  1. XELODA [Suspect]
     Indication: PANCREATIC CARCINOMA
     Dosage: 1500 MG/M2 DAILY PO
     Route: 048
     Dates: start: 20050109, end: 20050305
  2. GEMZAR [Suspect]
     Dosage: 1150 MG WEEKLY IV DRIP
     Route: 041
     Dates: start: 20050112, end: 20050302
  3. TAXOTERE [Suspect]
     Dosage: 45 MG  WEEKLY IV DRIP
     Route: 041
     Dates: start: 20050112, end: 20050302

REACTIONS (1)
  - DEATH [None]
